FAERS Safety Report 6723886-4 (Version None)
Quarter: 2010Q2

REPORT INFORMATION
  Report Type: 
  Country: None (occurrence: None)
  Receive Date: 20100511
  Receipt Date: 20100503
  Transmission Date: 20101027
  Serious: Yes (Other)
  Sender: FDA-Public Use
  Company Number: A0857595A

PATIENT
  Age: 72 Year
  Sex: Female

DRUGS (1)
  1. SODIUM FLUORIDE + POTASSIUM NITRATE (FORMULATION UNKNOWN) (SODIUM FLUO [Suspect]
     Indication: DENTAL CLEANING
     Dosage: DENTAL
     Route: 004

REACTIONS (8)
  - AGEUSIA [None]
  - APTYALISM [None]
  - DRY MOUTH [None]
  - DYSKINESIA [None]
  - GLOSSODYNIA [None]
  - ORAL DISCOMFORT [None]
  - TONGUE DRY [None]
  - TONGUE PARALYSIS [None]
